FAERS Safety Report 7721505-1 (Version None)
Quarter: 2011Q3

REPORT INFORMATION
  Report Type: 
  Country: None (occurrence: None)
  Receive Date: 20110831
  Receipt Date: 20110822
  Transmission Date: 20111222
  Serious: Yes (Hospitalization)
  Sender: FDA-Public Use
  Company Number: US-BAYER-201036899NA

PATIENT
  Age: 23 Year
  Sex: Female
  Weight: 95.238 kg

DRUGS (1)
  1. YASMIN [Suspect]
     Indication: CONTRACEPTION
     Dates: start: 20060301, end: 20060801

REACTIONS (7)
  - PULMONARY EMBOLISM [None]
  - CHEST PAIN [None]
  - MUSCULOSKELETAL PAIN [None]
  - PHARYNGEAL ULCERATION [None]
  - PAINFUL RESPIRATION [None]
  - PAIN [None]
  - GALLBLADDER DISORDER [None]
